FAERS Safety Report 25173660 (Version 2)
Quarter: 2025Q2

REPORT INFORMATION
  Report Type: Spontaneous
  Country: US (occurrence: US)
  Receive Date: 20250408
  Receipt Date: 20250624
  Transmission Date: 20250716
  Serious: No
  Sender: MYLAN
  Company Number: US-MYLANLABS-2025M1024870

PATIENT
  Age: 74 Year
  Sex: Female
  Weight: 58.51 kg

DRUGS (8)
  1. TYRVAYA [Suspect]
     Active Substance: VARENICLINE TARTRATE
     Indication: Dry eye
     Dosage: 0.03 MILLIGRAM, BID (SQUIRT IN EACH NOSTRIL TWICE A DAY, 12 HOURS APART)
  2. TYRVAYA [Suspect]
     Active Substance: VARENICLINE TARTRATE
     Dosage: 0.03 MILLIGRAM, BID (SQUIRT IN EACH NOSTRIL TWICE A DAY, 12 HOURS APART)
  3. TYRVAYA [Suspect]
     Active Substance: VARENICLINE TARTRATE
     Dosage: 0.03 MILLIGRAM, BID (SQUIRT IN EACH NOSTRIL TWICE A DAY, 12 HOURS APART)
     Route: 045
  4. TYRVAYA [Suspect]
     Active Substance: VARENICLINE TARTRATE
     Dosage: 0.03 MILLIGRAM, BID (SQUIRT IN EACH NOSTRIL TWICE A DAY, 12 HOURS APART)
     Route: 045
  5. TYRVAYA [Suspect]
     Active Substance: VARENICLINE TARTRATE
     Dosage: 0.03 MILLIGRAM, BID (SQUIRT IN EACH NOSTRIL TWICE A DAY, 12 HOURS APART)
  6. TYRVAYA [Suspect]
     Active Substance: VARENICLINE TARTRATE
     Dosage: 0.03 MILLIGRAM, BID (SQUIRT IN EACH NOSTRIL TWICE A DAY, 12 HOURS APART)
  7. TYRVAYA [Suspect]
     Active Substance: VARENICLINE TARTRATE
     Dosage: 0.03 MILLIGRAM, BID (SQUIRT IN EACH NOSTRIL TWICE A DAY, 12 HOURS APART)
     Route: 045
  8. TYRVAYA [Suspect]
     Active Substance: VARENICLINE TARTRATE
     Dosage: 0.03 MILLIGRAM, BID (SQUIRT IN EACH NOSTRIL TWICE A DAY, 12 HOURS APART)
     Route: 045

REACTIONS (3)
  - Product use complaint [Unknown]
  - Product use issue [Unknown]
  - Product delivery mechanism issue [Unknown]

NARRATIVE: CASE EVENT DATE: 20250101
